FAERS Safety Report 7220844-0 (Version None)
Quarter: 2011Q1

REPORT INFORMATION
  Report Type: 
  Country: None (occurrence: None)
  Receive Date: 20110112
  Receipt Date: 20080318
  Transmission Date: 20110831
  Serious: Yes (Death)
  Sender: FDA-Public Use
  Company Number: ES-CELGENEUS-144-21880-08031416

PATIENT
  Sex: Male

DRUGS (2)
  1. REVLIMID [Suspect]
     Route: 048
     Dates: start: 20070525, end: 20070601
  2. REVLIMID [Suspect]
     Route: 048
     Dates: start: 20070608, end: 20070818

REACTIONS (1)
  - ACUTE MYELOID LEUKAEMIA [None]
